FAERS Safety Report 5559197-2 (Version None)
Quarter: 2007Q4

REPORT INFORMATION
  Report Type: 
  Country: None (occurrence: None)
  Receive Date: 20071214
  Receipt Date: 20070921
  Transmission Date: 20080405
  Serious: No
  Sender: FDA-Public Use
  Company Number: US-ABBOTT-07P-163-0418071-00

PATIENT
  Sex: Female
  Weight: 70.824 kg

DRUGS (10)
  1. HUMIRA [Suspect]
     Indication: RHEUMATOID ARTHRITIS
     Route: 058
     Dates: start: 20030101
  2. METHOTREXATE [Concomitant]
     Indication: RHEUMATOID ARTHRITIS
     Route: 048
  3. CYCLOBENZAPRINE HCL [Concomitant]
     Indication: FIBROMYALGIA
     Route: 048
  4. FOLIC ACID [Concomitant]
     Indication: RHEUMATOID ARTHRITIS
     Route: 048
  5. SERTRALINE [Concomitant]
     Indication: PREMENSTRUAL SYNDROME
     Route: 048
  6. SERTRALINE [Concomitant]
     Indication: DEPRESSION
  7. VICODIN [Concomitant]
     Indication: PAIN
     Dosage: 10/65MG
     Route: 048
  8. MORPHINE SULFATE [Concomitant]
     Indication: PAIN
  9. PHENERGAN HCL [Concomitant]
     Indication: NAUSEA
     Route: 048
  10. VALIUM [Concomitant]
     Indication: PAIN
     Route: 048

REACTIONS (3)
  - GINGIVAL INFECTION [None]
  - ORAL FUNGAL INFECTION [None]
  - VULVOVAGINAL MYCOTIC INFECTION [None]
